FAERS Safety Report 16638281 (Version 3)
Quarter: 2019Q3

REPORT INFORMATION
  Report Type: Spontaneous
  Country: SK (occurrence: SK)
  Receive Date: 20190726
  Receipt Date: 20190807
  Transmission Date: 20191004
  Serious: Yes (Other)
  Sender: FDA-Public Use
  Company Number: SK-009507513-1907SVK014421

PATIENT
  Age: 45 Year
  Sex: Female
  Weight: 70 kg

DRUGS (11)
  1. THIOCTACID [Concomitant]
     Active Substance: .ALPHA.-LIPOIC ACID
  2. NONSTEROIDAL ANTI-INFLAMMATORY DRUG (UNSPECIFIED) [Concomitant]
     Active Substance: UNSPECIFIED INGREDIENT
  3. SOLU-MEDROL [Concomitant]
     Active Substance: METHYLPREDNISOLONE SODIUM SUCCINATE
  4. INTRON A [Suspect]
     Active Substance: INTERFERON ALFA-2B
     Dosage: UNK
     Dates: start: 20190524, end: 20190628
  5. TRAMAL [Concomitant]
     Active Substance: TRAMADOL
  6. INTRON A [Suspect]
     Active Substance: INTERFERON ALFA-2B
     Indication: MALIGNANT MELANOMA
     Dosage: PRESCRIPTION 12 PENS, 3 TIMES PER WEEK
     Route: 058
     Dates: start: 20150524
  7. INTRON A [Suspect]
     Active Substance: INTERFERON ALFA-2B
     Indication: ADJUVANT THERAPY
     Dosage: PRESCRIPTION: 11 PENS, TIW
     Route: 058
     Dates: start: 20150621
  8. ALMIRAL (DICLOFENAC SODIUM) [Concomitant]
  9. INTRON A [Suspect]
     Active Substance: INTERFERON ALFA-2B
     Dosage: HD INTRON PEN
     Dates: start: 201812, end: 201901
  10. INTRON A [Suspect]
     Active Substance: INTERFERON ALFA-2B
     Dosage: INTRON 20 MIL JJ SC 3 X TD (PEN)
     Route: 058
     Dates: start: 2019, end: 20190523
  11. VERAL (DICLOFENAC SODIUM) [Concomitant]
     Active Substance: DICLOFENAC SODIUM

REACTIONS (4)
  - Autoimmune arthritis [Not Recovered/Not Resolved]
  - Product dose omission [Unknown]
  - Product availability issue [Unknown]
  - Hepatotoxicity [Unknown]

NARRATIVE: CASE EVENT DATE: 201812
